FAERS Safety Report 18105783 (Version 4)
Quarter: 2021Q2

REPORT INFORMATION
  Report Type: Report from Study
  Country: US (occurrence: US)
  Receive Date: 20200804
  Receipt Date: 20210420
  Transmission Date: 20210717
  Serious: No
  Sender: FDA-Public Use
  Company Number: US-BIOVITRUM-2020US4051

PATIENT
  Age: 41 Year
  Sex: Male

DRUGS (2)
  1. KINERET [Suspect]
     Active Substance: ANAKINRA
     Indication: HAEMOPHAGOCYTIC LYMPHOHISTIOCYTOSIS
  2. KINERET [Suspect]
     Active Substance: ANAKINRA
     Indication: HAEMOPHAGOCYTIC LYMPHOHISTIOCYTOSIS
     Route: 058
     Dates: start: 20190926

REACTIONS (8)
  - Somnolence [Unknown]
  - Off label use [Unknown]
  - Injection site rash [Unknown]
  - Rash [Unknown]
  - Product dose omission issue [Unknown]
  - Peripheral swelling [Recovering/Resolving]
  - Headache [Unknown]
  - Rash macular [Unknown]

NARRATIVE: CASE EVENT DATE: 20190926
